FAERS Safety Report 6518916-9 (Version None)
Quarter: 2009Q4

REPORT INFORMATION
  Report Type: 
  Country: None (occurrence: None)
  Receive Date: 20091228
  Receipt Date: 20091217
  Transmission Date: 20100525
  Serious: Yes (Hospitalization)
  Sender: FDA-Public Use
  Company Number: DE-BRISTOL-MYERS SQUIBB COMPANY-14058853

PATIENT
  Age: 77 Year
  Sex: Male

DRUGS (5)
  1. CETUXIMAB [Suspect]
     Indication: COLORECTAL CANCER METASTATIC
     Dosage: CETUXIMAB 5MG/ML, THERAPY DATES: 09/JAN/08 12MAR2008(91DAYS)
     Route: 042
     Dates: start: 20071212, end: 20080312
  2. OXALIPLATIN [Suspect]
     Indication: COLORECTAL CANCER METASTATIC
     Dosage: 09/JAN/08; 12MAR2008(91DAYS)
     Route: 042
     Dates: start: 20071212, end: 20080312
  3. FLUOROURACIL [Suspect]
     Indication: COLORECTAL CANCER METASTATIC
     Dosage: 09/JAN/08 12MAR2008(91 DAYS)
     Route: 042
     Dates: start: 20071212, end: 20080312
  4. FOLINIC ACID [Suspect]
     Indication: COLORECTAL CANCER METASTATIC
     Dosage: 09/JAN/08 12MAR2008(91DAYS)
     Route: 042
     Dates: start: 20071212, end: 20080312
  5. LOPERAMIDE [Concomitant]

REACTIONS (1)
  - DIARRHOEA [None]
